FAERS Safety Report 6920632-6 (Version None)
Quarter: 2010Q3

REPORT INFORMATION
  Report Type: 
  Country: None (occurrence: None)
  Receive Date: 20100812
  Receipt Date: 20100803
  Transmission Date: 20110219
  Serious: Yes (Death, Hospitalization, Disabling)
  Sender: FDA-Public Use
  Company Number: NL-BAYER-201031659GPV

PATIENT
  Age: 54 Year
  Sex: Male

DRUGS (16)
  1. SORAFENIB [Suspect]
     Indication: NON-SMALL CELL LUNG CANCER
     Dosage: TOTAL DAILY DOSE: 800 MG
     Route: 048
     Dates: start: 20100623, end: 20100713
  2. OXYCONTIN [Concomitant]
  3. OXYCODONE HCL [Concomitant]
  4. OMEPRAZOLE [Concomitant]
  5. ACETAMINOPHEN [Concomitant]
  6. DICLOFENAC SODIUM [Concomitant]
  7. METOCLOPRAMIDE [Concomitant]
  8. NITRAZEPAM [Concomitant]
  9. LYRICA [Concomitant]
     Dosage: TOTAL DAILY DOSE: 350 MG
  10. LYRICA [Concomitant]
     Dosage: TOTAL DAILY DOSE: 300 MG
  11. PREGABALINE [Concomitant]
  12. METHADON [Concomitant]
     Dosage: TOTAL DAILY DOSE: 40 MG
     Route: 048
  13. METHADON [Concomitant]
     Dosage: TOTAL DAILY DOSE: 20 MG
  14. FENTANYL [Concomitant]
     Route: 062
  15. FENTANYL [Concomitant]
  16. MOVICOLON [Concomitant]

REACTIONS (8)
  - BILE DUCT STENOSIS [None]
  - BONE PAIN [None]
  - HEMIPLEGIA [None]
  - HYPOAESTHESIA [None]
  - METASTATIC PAIN [None]
  - NON-SMALL CELL LUNG CANCER [None]
  - PATHOLOGICAL FRACTURE [None]
  - TUMOUR COMPRESSION [None]
